FAERS Safety Report 6550348-X (Version None)
Quarter: 2010Q1

REPORT INFORMATION
  Report Type: 
  Country: None (occurrence: None)
  Receive Date: 20100125
  Receipt Date: 20100114
  Transmission Date: 20100710
  Serious: Yes (Hospitalization, Other)
  Sender: FDA-Public Use
  Company Number: FR-NOVOPROD-303204

PATIENT
  Age: 35 Year
  Sex: Female
  Weight: 64 kg

DRUGS (9)
  1. NORDITROPIN [Suspect]
     Indication: GROWTH HORMONE DEFICIENCY
     Dosage: 0.6 MG, QD
     Route: 058
     Dates: start: 20060221
  2. ARTANE [Concomitant]
     Dosage: 3 MG, QD
     Route: 048
     Dates: start: 19990306
  3. DEPAKENE [Concomitant]
     Indication: EPILEPSY
     Dosage: 600 MG, QD
     Route: 048
  4. LAMICTAL [Concomitant]
     Indication: EPILEPSY
     Dosage: 100 MG, QD
     Route: 048
  5. MODOPAR [Concomitant]
     Dosage: 187.5 MG, QD
     Route: 048
     Dates: start: 19980901
  6. LEVOTHYROXINE SODIUM [Concomitant]
     Indication: BLOOD THYROID STIMULATING HORMONE ABNORMAL
     Dosage: 100 UG, QD
     Dates: start: 20040121
  7. HYDROCORTISONE [Concomitant]
     Indication: BLOOD CORTICOTROPHIN ABNORMAL
     Dosage: 15 MG, QD
     Route: 048
     Dates: start: 20050201
  8. CLIMASTON                          /01248201/ [Concomitant]
     Indication: GONADOTROPHIN DEFICIENCY
     Dosage: 6 MG, QD
     Route: 048
  9. UVEDOSE [Concomitant]
     Indication: VITAMIN D DEFICIENCY
     Dosage: ONE VIAL PER 3 MONTHS
     Dates: start: 20070329

REACTIONS (1)
  - MENINGIOMA [None]
